FAERS Safety Report 20968118 (Version 1)
Quarter: 2022Q2

REPORT INFORMATION
  Report Type: Spontaneous
  Country: AU (occurrence: AU)
  Receive Date: 20220616
  Receipt Date: 20220616
  Transmission Date: 20220721
  Serious: Yes (Death, Hospitalization)
  Sender: FDA-Public Use
  Company Number: AU-TEVA-2022-AU-2045322

PATIENT
  Age: 59 Year
  Sex: Female

DRUGS (6)
  1. PREGABALIN [Suspect]
     Active Substance: PREGABALIN
     Indication: Pain management
     Route: 065
  2. FENTANYL [Suspect]
     Active Substance: FENTANYL
     Indication: Pain management
     Route: 062
  3. METHADONE [Suspect]
     Active Substance: METHADONE HYDROCHLORIDE
     Indication: Pain management
     Dosage: 10 MILLIGRAM DAILY;
     Route: 048
  4. MEPERIDINE [Suspect]
     Active Substance: MEPERIDINE
     Indication: Pain management
     Route: 030
  5. DOXYLAMINE [Suspect]
     Active Substance: DOXYLAMINE
     Indication: Sedative therapy
     Route: 065
  6. AMITRIPTYLINE [Suspect]
     Active Substance: AMITRIPTYLINE
     Indication: Antipsychotic therapy
     Dosage: 100 MILLIGRAM DAILY; AT NIGHT
     Route: 065

REACTIONS (3)
  - Respiratory depression [Fatal]
  - Toxicity to various agents [Fatal]
  - Product communication issue [Fatal]
